FAERS Safety Report 16356536 (Version 1)
Quarter: 2019Q2

REPORT INFORMATION
  Report Type: Spontaneous
  Country: JP (occurrence: JP)
  Receive Date: 20190527
  Receipt Date: 20190527
  Transmission Date: 20190711
  Serious: Yes (Death, Other)
  Sender: FDA-Public Use
  Company Number: JP-SA-2019SA141617

PATIENT
  Age: 72 Year
  Sex: Female
  Weight: 47 kg

DRUGS (15)
  1. CRAVIT [Concomitant]
     Active Substance: LEVOFLOXACIN
     Dosage: 100 MG, TID
     Route: 048
     Dates: start: 20051129, end: 20051207
  2. BIOFERMIN R [Concomitant]
     Active Substance: DIETARY SUPPLEMENT\PROBIOTICS
     Dosage: 1 G, TID
     Route: 048
     Dates: start: 20051129, end: 20051207
  3. METLIGINE [Concomitant]
     Active Substance: MIDODRINE HYDROCHLORIDE
     Dosage: 2 MG, QD
     Route: 048
     Dates: start: 20051114, end: 20051207
  4. SEVELAMER HYDROCHLORIDE. [Suspect]
     Active Substance: SEVELAMER HYDROCHLORIDE
     Dosage: 1 G, TID
     Route: 048
     Dates: start: 200408, end: 20051110
  5. RISUMIC [Concomitant]
     Active Substance: AMEZINIUM METILSULFATE
     Dosage: 10 MG, QD
     Route: 048
     Dates: start: 200403, end: 20051207
  6. GASMOTIN [Concomitant]
     Active Substance: MOSAPRIDE CITRATE
     Dosage: 1 DF, TID
     Route: 048
     Dates: start: 200411, end: 20051207
  7. WARFARIN POTASSIUM [Concomitant]
     Active Substance: WARFARIN POTASSIUM
     Dosage: 1.5 MG, QD
     Route: 048
     Dates: start: 200502, end: 20051207
  8. PANTOSIN [Concomitant]
     Active Substance: PANTETHINE
     Dosage: 2 G, QD
     Route: 048
     Dates: start: 20040224, end: 20051110
  9. TAKEPRON [Concomitant]
     Active Substance: LANSOPRAZOLE
     Dosage: 1 DF, QD
     Route: 048
     Dates: start: 200502, end: 20051207
  10. FULSTAN [Concomitant]
     Dosage: 1 DF, QD
     Route: 048
     Dates: start: 200509, end: 20051207
  11. SEVELAMER HYDROCHLORIDE. [Suspect]
     Active Substance: SEVELAMER HYDROCHLORIDE
     Indication: HYPERPHOSPHATAEMIA
     Dosage: 1.5 G, QD, ORAL INTAKE DURING MEALS
     Route: 048
     Dates: start: 20040302, end: 200408
  12. LANIRAPID [Concomitant]
     Active Substance: METILDIGOXIN
     Dosage: 1 DF, QD
     Route: 048
     Dates: start: 200405, end: 20051207
  13. SOLETON [Concomitant]
     Active Substance: ZALTOPROFEN
     Dosage: 80 MG, TID
     Route: 048
     Dates: start: 20051126, end: 20051207
  14. MUCOSTA [Concomitant]
     Active Substance: REBAMIPIDE
     Dosage: 100 MG, TID
     Route: 048
     Dates: start: 20051126, end: 20051207
  15. SEVELAMER HYDROCHLORIDE. [Suspect]
     Active Substance: SEVELAMER HYDROCHLORIDE
     Dosage: 1 G, TID
     Route: 048
     Dates: start: 20051115, end: 20051207

REACTIONS (2)
  - Intestinal perforation [Fatal]
  - Crystal deposit intestine [Unknown]
